FAERS Safety Report 21405924 (Version 2)
Quarter: 2022Q4

REPORT INFORMATION
  Report Type: Spontaneous
  Country: US (occurrence: US)
  Receive Date: 20221004
  Receipt Date: 20221011
  Transmission Date: 20230113
  Serious: Yes (Hospitalization)
  Sender: FDA-Public Use
  Company Number: US-UNITED THERAPEUTICS-UNT-2022-022542

PATIENT
  Sex: Male
  Weight: 84.354 kg

DRUGS (5)
  1. REMODULIN [Suspect]
     Active Substance: TREPROSTINIL
     Indication: Pulmonary arterial hypertension
     Dosage: UNK, CONTINUING
     Route: 058
     Dates: start: 20220920
  2. REMODULIN [Suspect]
     Active Substance: TREPROSTINIL
     Dosage: 0.014 ?G/KG (PREFILLED WITH 3ML PER CASSETTE; AT PUMP RATE OF 29MCL/ HOUR), CONTINUING
     Route: 058
     Dates: start: 202209
  3. REMODULIN [Suspect]
     Active Substance: TREPROSTINIL
     Dosage: 0.015 ?G/KG (PREFILLED WITH 3ML PER CASSETTE AT PUMP RATE OF 31 MCL/HOUR), CONTINUING
     Route: 058
     Dates: start: 2022
  4. ELIQUIS [Concomitant]
     Active Substance: APIXABAN
     Indication: Product used for unknown indication
     Dosage: UNK
     Route: 065
  5. DILTIAZEM [Concomitant]
     Active Substance: DILTIAZEM
     Indication: Product used for unknown indication
     Dosage: UNK
     Route: 065

REACTIONS (7)
  - Infusion site erythema [Unknown]
  - Infusion site pain [Unknown]
  - Infusion site induration [Unknown]
  - Infusion site haemorrhage [Recovered/Resolved]
  - Epistaxis [Unknown]
  - Arthralgia [Unknown]
  - Device failure [Recovered/Resolved]

NARRATIVE: CASE EVENT DATE: 20220101
